FAERS Safety Report 10218518 (Version 3)
Quarter: 2014Q2

REPORT INFORMATION
  Report Type: Spontaneous
  Country: US (occurrence: US)
  Receive Date: 20140605
  Receipt Date: 20140623
  Transmission Date: 20141212
  Serious: No
  Sender: FDA-Public Use
  Company Number: US-ASTRAZENECA-2014SE33596

PATIENT
  Age: 90 Year
  Sex: Male
  Weight: 73 kg

DRUGS (2)
  1. PULMICORT FLEXHALER [Suspect]
     Route: 055
     Dates: start: 20140513
  2. PROAIR HFA [Concomitant]
     Indication: BRONCHIAL DISORDER

REACTIONS (5)
  - Cough [Not Recovered/Not Resolved]
  - Productive cough [Unknown]
  - Device misuse [Unknown]
  - Drug dose omission [Unknown]
  - Off label use [Unknown]
